FAERS Safety Report 6568982-X (Version None)
Quarter: 2010Q1

REPORT INFORMATION
  Report Type: 
  Country: None (occurrence: None)
  Receive Date: 20100203
  Receipt Date: 20100115
  Transmission Date: 20100710
  Serious: Yes (Other)
  Sender: FDA-Public Use
  Company Number: US-JNJFOC-20100105693

PATIENT
  Sex: Male
  Weight: 90.72 kg

DRUGS (1)
  1. TYLENOL (CAPLET) [Suspect]
     Indication: DRUG USE FOR UNKNOWN INDICATION

REACTIONS (2)
  - HOMICIDE [None]
  - SCHIZOPHRENIA, PARANOID TYPE [None]
